FAERS Safety Report 8616486-2 (Version None)
Quarter: 2012Q3

REPORT INFORMATION
  Report Type: 
  Country: None (occurrence: None)
  Receive Date: 20120823
  Receipt Date: 20120810
  Transmission Date: 20120928
  Serious: Yes (Other)
  Sender: FDA-Public Use
  Company Number: US-JNJFOC-20120607843

PATIENT
  Age: 84 Year
  Sex: Male

DRUGS (8)
  1. MOTRIN IB [Suspect]
     Route: 048
  2. MOTRIN IB [Suspect]
     Indication: MYOCARDIAL INFARCTION
     Route: 048
  3. COREG [Concomitant]
     Indication: MYOCARDIAL INFARCTION
     Route: 065
  4. LASIX [Concomitant]
     Indication: MYOCARDIAL INFARCTION
     Route: 065
  5. WARFARIN SODIUM [Concomitant]
     Indication: MYOCARDIAL INFARCTION
     Route: 065
  6. WARFARIN SODIUM [Concomitant]
     Indication: CEREBROVASCULAR ACCIDENT
     Route: 065
  7. ATORVASTATIN [Concomitant]
     Indication: BLOOD CHOLESTEROL INCREASED
     Route: 065
  8. ASPIRIN [Concomitant]
     Indication: CARDIAC DISORDER
     Route: 065

REACTIONS (1)
  - RENAL FAILURE ACUTE [None]
